FAERS Safety Report 4325337-6 (Version None)
Quarter: 2004Q1

REPORT INFORMATION
  Report Type: 
  Country: None (occurrence: None)
  Receive Date: 20040323
  Receipt Date: 20040311
  Transmission Date: 20041129
  Serious: Yes (Death)
  Sender: FDA-Public Use
  Company Number: 2004-DE-01207GD

PATIENT
  Age: 75 Year
  Sex: Male

DRUGS (3)
  1. CYCLOPHOSPHAMIDE [Suspect]
     Indication: MALIGNANT LYMPHOID NEOPLASM
     Dosage: 750 MG/ME2
  2. PREDNISONE [Suspect]
     Indication: MALIGNANT LYMPHOID NEOPLASM
     Dosage: 100 MG
  3. DOXORUBICIN HCL [Suspect]
     Indication: MALIGNANT LYMPHOID NEOPLASM
     Dosage: 50 MG/ME2

REACTIONS (1)
  - SUDDEN DEATH [None]
